FAERS Safety Report 15667617 (Version 1)
Quarter: 2018Q4

REPORT INFORMATION
  Report Type: Spontaneous
  Country: US (occurrence: US)
  Receive Date: 20181128
  Receipt Date: 20181128
  Transmission Date: 20190205
  Serious: Yes (Other)
  Sender: FDA-Public Use
  Company Number: None

PATIENT
  Age: 57 Year
  Sex: Female
  Weight: 65.25 kg

DRUGS (2)
  1. AMYTRIPTLINE (M38 IMPRINT AND M36) [Suspect]
     Active Substance: AMITRIPTYLINE
     Indication: PAIN
     Dosage: ?          QUANTITY:30 TABLET(S);?
     Route: 048
     Dates: start: 20170916, end: 20181122
  2. AMITRIPTYLINE HCL 25 MG TAB TABLET [Suspect]
     Active Substance: AMITRIPTYLINE HYDROCHLORIDE
     Indication: PAIN
     Dosage: ?          QUANTITY:1 TABLET(S);?
     Route: 048
     Dates: start: 20170916, end: 20170922

REACTIONS (4)
  - Dysstasia [None]
  - Fall [None]
  - Loss of consciousness [None]
  - Gait inability [None]

NARRATIVE: CASE EVENT DATE: 20170916
